FAERS Safety Report 4435104-0 (Version None)
Quarter: 2004Q3

REPORT INFORMATION
  Report Type: 
  Country: None (occurrence: None)
  Receive Date: 20040826
  Receipt Date: 20040813
  Transmission Date: 20050211
  Serious: Yes (Other)
  Sender: FDA-Public Use
  Company Number: 8007005

PATIENT
  Age: 15 Month
  Sex: Male
  Weight: 10 kg

DRUGS (4)
  1. KEPPRA [Suspect]
     Indication: CONVULSION
     Dosage: 0.5 ML 1/D PO
     Route: 048
     Dates: start: 20040731, end: 20040801
  2. KEPPRA [Suspect]
     Indication: CONVULSION
     Dosage: 150 MG PO
     Route: 048
     Dates: start: 20040802, end: 20040810
  3. KEPPRA [Suspect]
     Indication: CONVULSION
     Dosage: 150 MG PO
     Route: 048
     Dates: start: 20040811, end: 20040811
  4. KEPPRA [Suspect]
     Indication: CONVULSION
     Dosage: 150 MG PO
     Route: 048
     Dates: start: 20040812

REACTIONS (2)
  - FATIGUE [None]
  - MEDICATION ERROR [None]
